FAERS Safety Report 5662230-0 (Version None)
Quarter: 2008Q1

REPORT INFORMATION
  Report Type: 
  Country: None (occurrence: None)
  Receive Date: 20080312
  Receipt Date: 20080305
  Transmission Date: 20080703
  Serious: Yes (Other)
  Sender: FDA-Public Use
  Company Number: GB-PFIZER INC-2008021428

PATIENT
  Age: 70 Year
  Sex: Female

DRUGS (8)
  1. DIFLUCAN [Suspect]
     Indication: GLOSSITIS
     Dosage: DAILY DOSE:50MG
     Route: 048
     Dates: start: 20070426, end: 20070518
  2. DIFLUCAN [Suspect]
     Indication: FUNGAL INFECTION
  3. ALENDRONIC ACID [Concomitant]
     Indication: OSTEOPOROSIS
     Route: 048
  4. ATROVENT [Concomitant]
     Indication: CHRONIC OBSTRUCTIVE PULMONARY DISEASE
     Route: 055
  5. DIGOXIN [Concomitant]
     Route: 048
  6. PREDNISOLONE [Concomitant]
     Indication: ASTHMA
     Route: 048
  7. ALBUTEROL [Concomitant]
     Indication: CHRONIC OBSTRUCTIVE PULMONARY DISEASE
     Route: 055
  8. SERETIDE [Concomitant]
     Indication: CHRONIC OBSTRUCTIVE PULMONARY DISEASE
     Route: 055

REACTIONS (6)
  - ALLERGY TO CHEMICALS [None]
  - ASTHMA [None]
  - BRONCHOSPASM [None]
  - HYPOKALAEMIA [None]
  - OEDEMA PERIPHERAL [None]
  - SKIN LACERATION [None]
